FAERS Safety Report 9670968 (Version 1)
Quarter: 2013Q4

REPORT INFORMATION
  Report Type: Report from Study
  Country: US (occurrence: US)
  Receive Date: 20131106
  Receipt Date: 20131106
  Transmission Date: 20140711
  Serious: Yes (Hospitalization)
  Sender: FDA-Public Use
  Company Number: US-ROCHE-1300070

PATIENT
  Sex: Female

DRUGS (2)
  1. XOLAIR [Suspect]
     Indication: ASTHMA
     Route: 065
     Dates: end: 20120715
  2. XOLAIR [Suspect]
     Route: 065
     Dates: start: 20121115

REACTIONS (3)
  - Malaise [Unknown]
  - Poor quality sleep [Unknown]
  - Activities of daily living impaired [Unknown]
